FAERS Safety Report 24401635 (Version 1)
Quarter: 2024Q4

REPORT INFORMATION
  Report Type: Spontaneous
  Country: US (occurrence: US)
  Receive Date: 20241007
  Receipt Date: 20241007
  Transmission Date: 20250115
  Serious: No
  Sender: AMGEN
  Company Number: US-AMGEN-USASP2024196757

PATIENT
  Sex: Male
  Weight: 45.351 kg

DRUGS (2)
  1. RAVICTI [Suspect]
     Active Substance: GLYCEROL PHENYLBUTYRATE
     Indication: Ornithine transcarbamoylase deficiency
     Dosage: 4.5 MILLIGRAM, TID (TAKE BY MOUTH OR G-TUBE)
     Route: 048
  2. RAVICTI [Suspect]
     Active Substance: GLYCEROL PHENYLBUTYRATE
     Dosage: 4.5 MILLIGRAM, TID, (TAKE BY MOUTH OR G-TUBE)
     Route: 048

REACTIONS (1)
  - Weight decreased [Unknown]
